FAERS Safety Report 7050451-4 (Version None)
Quarter: 2010Q4

REPORT INFORMATION
  Report Type: 
  Country: None (occurrence: None)
  Receive Date: 20101018
  Receipt Date: 20100929
  Transmission Date: 20110411
  Serious: Yes (Other)
  Sender: FDA-Public Use
  Company Number: PHHY2010RO65134

PATIENT
  Sex: Female

DRUGS (5)
  1. EXFORGE [Suspect]
     Indication: HYPERTENSION
     Dosage: 5/80 MG
  2. METOPROLOL [Concomitant]
     Dosage: 50 MG
  3. TERTENSIF [Concomitant]
     Dosage: 1.5 MG
  4. BETASERC [Concomitant]
     Dosage: 8 MG
  5. CRESTOR [Concomitant]
     Dosage: 10 MG

REACTIONS (2)
  - PSYCHOMOTOR HYPERACTIVITY [None]
  - RASH [None]
